FAERS Safety Report 5072186-X (Version None)
Quarter: 2006Q3

REPORT INFORMATION
  Report Type: 
  Country: None (occurrence: None)
  Receive Date: 20060710
  Receipt Date: 20051221
  Transmission Date: 20061208
  Serious: Yes (Hospitalization)
  Sender: FDA-Public Use
  Company Number: 2005US001870

PATIENT
  Sex: Female

DRUGS (1)
  1. ADENOSCAN [Suspect]
     Indication: SCAN MYOCARDIAL PERFUSION
     Dates: start: 20051201, end: 20051201

REACTIONS (6)
  - CHEST PAIN [None]
  - FEELING COLD [None]
  - HEART RATE DECREASED [None]
  - HYPERTENSION [None]
  - HYPERVENTILATION [None]
  - TREMOR [None]
